FAERS Safety Report 8159878-0 (Version None)
Quarter: 2012Q1

REPORT INFORMATION
  Report Type: 
  Country: None (occurrence: None)
  Receive Date: 20120223
  Receipt Date: 20120214
  Transmission Date: 20120608
  Serious: Yes (Life-Threatening)
  Sender: FDA-Public Use
  Company Number: GB-GILEAD-2012-0049307

PATIENT
  Sex: Male

DRUGS (24)
  1. AMBRISENTAN [Suspect]
     Indication: PULMONARY HYPERTENSION
     Dosage: 2.5MG PER DAY
     Route: 048
     Dates: start: 20111201
  2. CLARITHROMYCIN [Suspect]
     Dosage: 400MG PER DAY
     Route: 048
  3. ALLOPURINOL [Concomitant]
     Dosage: 100MG PER DAY
     Route: 048
  4. CARVEDILOL [Concomitant]
     Indication: PRODUCT USED FOR UNKNOWN INDICATION
     Dosage: 1.25MG PER DAY
     Route: 048
     Dates: start: 20111001
  5. SPIRIVA [Concomitant]
     Route: 055
  6. AMBRISENTAN [Suspect]
     Dosage: 2.5MG PER DAY
     Route: 048
     Dates: start: 20120102
  7. CLARITHROMYCIN [Suspect]
     Indication: BRONCHITIS CHRONIC
     Dosage: 400MG PER DAY
     Route: 048
  8. ASPIRIN [Concomitant]
     Dosage: 100MG PER DAY
     Route: 048
  9. SPIRIVA [Concomitant]
     Indication: CHRONIC OBSTRUCTIVE PULMONARY DISEASE
     Route: 055
  10. LANSOPRAZOLE [Concomitant]
     Dosage: 15MG PER DAY
     Route: 048
  11. WARFARIN SODIUM [Suspect]
     Dosage: 1.5MG PER DAY
     Route: 048
     Dates: start: 20120103
  12. CHINESE MEDICINE [Concomitant]
     Dosage: 7.5G PER DAY
     Route: 048
  13. FERROMIA                           /00023516/ [Concomitant]
     Indication: IRON DEFICIENCY ANAEMIA
     Dosage: 100MG PER DAY
     Route: 048
  14. WARFARIN SODIUM [Suspect]
     Indication: ATRIAL FIBRILLATION
     Dosage: 1MG PER DAY
     Route: 048
     Dates: start: 20111230, end: 20120102
  15. FUROSEMIDE [Concomitant]
     Indication: ATRIAL FIBRILLATION
     Dosage: 40MG PER DAY
     Route: 048
  16. MUCODYNE [Concomitant]
     Dosage: 1500MG PER DAY
     Route: 048
  17. ALLOPURINOL [Concomitant]
     Indication: HYPERURICAEMIA
     Dosage: 100MG PER DAY
     Route: 048
  18. CHINESE MEDICINE [Concomitant]
     Indication: PRODUCT USED FOR UNKNOWN INDICATION
     Dosage: 7.5G PER DAY
     Route: 048
  19. ALDACTONE [Concomitant]
     Indication: POLYURIA
     Dosage: 25MG PER DAY
     Route: 048
     Dates: start: 20111201
  20. ASPIRIN [Concomitant]
     Indication: CEREBRAL INFARCTION
     Dosage: 100MG PER DAY
     Route: 048
  21. LANSOPRAZOLE [Concomitant]
     Indication: ULCER HAEMORRHAGE
     Dosage: 15MG PER DAY
     Route: 048
  22. FUROSEMIDE [Concomitant]
     Dosage: 40MG PER DAY
     Route: 048
  23. MUCODYNE [Concomitant]
     Indication: PRODUCT USED FOR UNKNOWN INDICATION
     Dosage: 1500MG PER DAY
     Route: 048
  24. DIGOXIN [Concomitant]
     Indication: PRODUCT USED FOR UNKNOWN INDICATION
     Dosage: .125MG PER DAY
     Route: 048
     Dates: start: 20111201

REACTIONS (5)
  - EPISTAXIS [None]
  - PYREXIA [None]
  - INTERNATIONAL NORMALISED RATIO INCREASED [None]
  - EATING DISORDER [None]
  - CHRONIC OBSTRUCTIVE PULMONARY DISEASE [None]
